FAERS Safety Report 7770877-0 (Version None)
Quarter: 2011Q3

REPORT INFORMATION
  Report Type: 
  Country: None (occurrence: None)
  Receive Date: 20110922
  Receipt Date: 20100810
  Transmission Date: 20111222
  Serious: Yes (Other)
  Sender: FDA-Public Use
  Company Number: US-ASTRAZENECA-2008UW01194

PATIENT
  Age: 9787 Day
  Sex: Female
  Weight: 69.9 kg

DRUGS (20)
  1. DEPAKOTE [Concomitant]
  2. SEROQUEL [Suspect]
     Dosage: 25-100 MG
     Route: 048
     Dates: start: 20020116
  3. SEROQUEL [Suspect]
     Dosage: 25-100 MG
     Route: 048
     Dates: start: 20020123
  4. SEROQUEL [Suspect]
     Dosage: 25-100 MG
     Route: 048
     Dates: start: 20020123
  5. SEROQUEL [Suspect]
     Dosage: 25-100 MG
     Route: 048
     Dates: start: 20020123
  6. SEROQUEL [Suspect]
     Dosage: 25-100 MG
     Route: 048
     Dates: start: 20020123
  7. FUROSEMIDE [Concomitant]
     Dates: start: 20020202
  8. SEROQUEL [Suspect]
     Indication: DEPRESSION
     Route: 048
     Dates: start: 19980601, end: 20021101
  9. SEROQUEL [Suspect]
     Indication: POST-TRAUMATIC STRESS DISORDER
     Route: 048
     Dates: start: 19980601, end: 20021101
  10. SEROQUEL [Suspect]
     Dosage: 25-100 MG
     Route: 048
     Dates: start: 20020116
  11. SEROQUEL [Suspect]
     Dosage: 25-100 MG
     Route: 048
     Dates: start: 20020116
  12. SEROQUEL [Suspect]
     Dosage: 25-100 MG
     Route: 048
     Dates: start: 20020116
  13. ALLEGRA D 24 HOUR [Concomitant]
     Dates: start: 20020123
  14. TRAZODONE HYDROCHLORIDE [Concomitant]
     Dates: start: 20020123
  15. SEROQUEL [Suspect]
     Indication: ANXIETY
     Route: 048
     Dates: start: 19980601, end: 20021101
  16. SEROQUEL [Suspect]
     Indication: BIPOLAR DISORDER
     Route: 048
     Dates: start: 19980601, end: 20021101
  17. NAPROXEN [Concomitant]
     Dates: start: 20020204
  18. TIAZAC [Concomitant]
     Dates: start: 20020123
  19. AUGMENTIN '125' [Concomitant]
     Dates: start: 20020208
  20. CYCLOPHOSPHAMIDE [Concomitant]
     Dates: start: 20020208

REACTIONS (9)
  - HYPERLIPIDAEMIA [None]
  - OBESITY [None]
  - DIABETIC COMA [None]
  - DIABETIC KETOACIDOSIS [None]
  - TYPE 1 DIABETES MELLITUS [None]
  - BLOOD CHOLESTEROL INCREASED [None]
  - ADVERSE DRUG REACTION [None]
  - DIABETIC COMPLICATION [None]
  - BLOOD TRIGLYCERIDES INCREASED [None]
